FAERS Safety Report 7082775-9 (Version None)
Quarter: 2010Q4

REPORT INFORMATION
  Report Type: 
  Country: None (occurrence: None)
  Receive Date: 20101104
  Receipt Date: 20101026
  Transmission Date: 20110411
  Serious: Yes (Hospitalization)
  Sender: FDA-Public Use
  Company Number: FR-BRISTOL-MYERS SQUIBB COMPANY-15366362

PATIENT
  Age: 70 Year
  Sex: Female

DRUGS (8)
  1. GLUCOPHAGE [Suspect]
     Indication: DIABETES MELLITUS
     Route: 048
  2. NOROXIN [Suspect]
     Indication: URINARY TRACT INFECTION
     Dosage: FORMULATION:400MG TAB
     Route: 048
     Dates: start: 20100504, end: 20100508
  3. DEROXAT [Suspect]
     Indication: DEPRESSION
     Dosage: 20MG TAB
     Route: 048
     Dates: end: 20100507
  4. INIPOMP [Suspect]
     Indication: GASTROOESOPHAGEAL REFLUX DISEASE
     Dosage: 40MG TAB
     Route: 048
     Dates: end: 20100507
  5. EXELON [Suspect]
     Indication: COGNITIVE DISORDER
     Dosage: 4.5MG TAB
     Route: 048
     Dates: end: 20100508
  6. DIAMICRON [Suspect]
     Indication: DIABETES MELLITUS
     Dosage: 30MG MODIFIED RELEASE TAB
     Route: 048
  7. IMOVANE [Suspect]
     Indication: SLEEP DISORDER
     Dosage: 7.5MG TAB.
     Route: 048
     Dates: start: 20100430
  8. DEPAKENE [Suspect]
     Indication: EPILEPSY
     Dosage: 500MG PROLONGED RELEASE TABLET
     Route: 048

REACTIONS (2)
  - EPILEPSY [None]
  - HYPONATRAEMIA [None]
